FAERS Safety Report 16283283 (Version 3)
Quarter: 2022Q2

REPORT INFORMATION
  Report Type: Spontaneous
  Country: US (occurrence: None)
  Receive Date: 20190507
  Receipt Date: 20220429
  Transmission Date: 20220720
  Serious: Yes (Other)
  Sender: FDA-Public Use
  Company Number: 2019SE63223

PATIENT
  Age: 16968 Day
  Sex: Female
  Weight: 92.1 kg

DRUGS (42)
  1. NEXIUM [Suspect]
     Active Substance: ESOMEPRAZOLE MAGNESIUM
     Indication: Gastrooesophageal reflux disease
     Route: 048
     Dates: start: 199001, end: 200012
  2. NEXIUM [Suspect]
     Active Substance: ESOMEPRAZOLE MAGNESIUM
     Indication: Gastrooesophageal reflux disease
     Route: 048
     Dates: start: 2001, end: 2011
  3. PRILOSEC [Suspect]
     Active Substance: OMEPRAZOLE MAGNESIUM
     Indication: Gastrooesophageal reflux disease
     Route: 048
     Dates: start: 199001, end: 200012
  4. PRILOSEC [Suspect]
     Active Substance: OMEPRAZOLE MAGNESIUM
     Indication: Gastrooesophageal reflux disease
     Route: 048
     Dates: start: 1990, end: 2011
  5. PRILOSEC [Suspect]
     Active Substance: OMEPRAZOLE MAGNESIUM
     Indication: Gastrooesophageal reflux disease
     Route: 048
     Dates: start: 20200109
  6. PRILOSEC [Suspect]
     Active Substance: OMEPRAZOLE MAGNESIUM
     Indication: Gastrooesophageal reflux disease
     Dosage: GENERIC
     Route: 065
     Dates: start: 20180531
  7. DEXILANT [Suspect]
     Active Substance: DEXLANSOPRAZOLE
     Indication: Gastrooesophageal reflux disease
     Route: 065
     Dates: start: 2011, end: 2019
  8. DEXILANT [Suspect]
     Active Substance: DEXLANSOPRAZOLE
     Indication: Gastrooesophageal reflux disease
     Route: 065
     Dates: start: 199001, end: 200012
  9. DEXILANT [Suspect]
     Active Substance: DEXLANSOPRAZOLE
     Indication: Gastrooesophageal reflux disease
     Route: 065
     Dates: start: 20171222
  10. PROMETHAZINE [Concomitant]
     Active Substance: PROMETHAZINE HYDROCHLORIDE
     Dates: start: 20010516
  11. TEQUIN [Concomitant]
     Active Substance: GATIFLOXACIN
     Dates: start: 20010516
  12. LOTREL [Concomitant]
     Active Substance: AMLODIPINE BESYLATE\BENAZEPRIL HYDROCHLORIDE
     Dates: start: 20020307
  13. MOBIC [Concomitant]
     Active Substance: MELOXICAM
     Dates: start: 20020307
  14. SONATA [Concomitant]
     Active Substance: ZALEPLON
     Dates: start: 20020806
  15. ZOLOFT [Concomitant]
     Active Substance: SERTRALINE HYDROCHLORIDE
     Dates: start: 20020806
  16. LEVAQUIN [Concomitant]
     Active Substance: LEVOFLOXACIN
     Dates: start: 20020816
  17. AMBIEN [Concomitant]
     Active Substance: ZOLPIDEM TARTRATE
     Dates: start: 20020816
  18. HYDROXYCHLOROQUINE [Concomitant]
     Active Substance: HYDROXYCHLOROQUINE
     Dates: start: 20030509
  19. NAPROXEN [Concomitant]
     Active Substance: NAPROXEN
     Dates: start: 20030509
  20. CEPHALEXIN [Concomitant]
     Active Substance: CEPHALEXIN
     Dates: start: 20030819
  21. DIFLUCAN [Concomitant]
     Active Substance: FLUCONAZOLE
     Dates: start: 20030819
  22. PREDNISONE [Concomitant]
     Active Substance: PREDNISONE
     Dates: start: 20031108
  23. TRAMADOL [Concomitant]
     Active Substance: TRAMADOL
     Dates: start: 20040316
  24. ACETAMINOPHEN\OXYCODONE HYDROCHLORIDE [Concomitant]
     Active Substance: ACETAMINOPHEN\OXYCODONE HYDROCHLORIDE
     Dates: start: 20050721
  25. AZITHROMYCIN [Concomitant]
     Active Substance: AZITHROMYCIN
     Dates: start: 20070504
  26. BENAZEPRIL [Concomitant]
     Active Substance: BENAZEPRIL HYDROCHLORIDE
     Dates: start: 20070606
  27. METOPROLOL [Concomitant]
     Active Substance: METOPROLOL
     Dates: start: 20070606
  28. PLAVIX [Concomitant]
     Active Substance: CLOPIDOGREL BISULFATE
     Dates: start: 20070703
  29. LYRICA [Concomitant]
     Active Substance: PREGABALIN
     Dates: start: 20080325
  30. ATENOLOL [Concomitant]
     Active Substance: ATENOLOL
     Dates: start: 20100921
  31. VENTOLIN HFA [Concomitant]
     Active Substance: ALBUTEROL SULFATE
  32. MOVANTIK [Concomitant]
     Active Substance: NALOXEGOL OXALATE
  33. AMLODIPINE BESYLATE [Concomitant]
     Active Substance: AMLODIPINE BESYLATE
  34. PREGABALIN [Concomitant]
     Active Substance: PREGABALIN
  35. LINZESS [Concomitant]
     Active Substance: LINACLOTIDE
  36. BELVIQ [Concomitant]
     Active Substance: LORCASERIN HYDROCHLORIDE
  37. ATORVASTATIN [Concomitant]
     Active Substance: ATORVASTATIN
  38. BENZONATATE [Concomitant]
     Active Substance: BENZONATATE
     Dates: start: 20030819
  39. DOXYCYCLINE HYCLATE [Concomitant]
     Active Substance: DOXYCYCLINE HYCLATE
     Dates: start: 20191012
  40. CLINDAMYCIN [Concomitant]
     Active Substance: CLINDAMYCIN
     Dates: start: 20160319
  41. FLONASE [Concomitant]
     Active Substance: FLUTICASONE PROPIONATE
     Dates: start: 20210810
  42. IMDUR [Concomitant]
     Active Substance: ISOSORBIDE MONONITRATE
     Dates: start: 20020810

REACTIONS (4)
  - Chronic kidney disease [Not Recovered/Not Resolved]
  - End stage renal disease [Unknown]
  - Nephrogenic anaemia [Unknown]
  - Gastrooesophageal reflux disease [Not Recovered/Not Resolved]

NARRATIVE: CASE EVENT DATE: 20140512
